FAERS Safety Report 25532816 (Version 1)
Quarter: 2025Q3

REPORT INFORMATION
  Report Type: Report from Study
  Country: US (occurrence: US)
  Receive Date: 20250709
  Receipt Date: 20250709
  Transmission Date: 20251021
  Serious: Yes (Other)
  Sender: BAUSCH AND LOMB
  Company Number: US-BAUSCHBL-2025BNL011966

PATIENT
  Age: 66 Year
  Sex: Female

DRUGS (1)
  1. MIEBO [Suspect]
     Active Substance: PERFLUOROHEXYLOCTANE
     Indication: Product used for unknown indication
     Dosage: INSTILL 1 DROP INTO BOTH EYES FOUR TIMES A DAY AS DIRECTED
     Route: 047
     Dates: start: 20240920, end: 20250701

REACTIONS (3)
  - Retinal detachment [Unknown]
  - Eye haemorrhage [Unknown]
  - Eye inflammation [Unknown]
